FAERS Safety Report 25501013 (Version 2)
Quarter: 2025Q3

REPORT INFORMATION
  Report Type: Spontaneous
  Country: MX (occurrence: MX)
  Receive Date: 20250701
  Receipt Date: 20250710
  Transmission Date: 20251020
  Serious: Yes (Hospitalization)
  Sender: ELI LILLY AND COMPANY
  Company Number: MX-ELI_LILLY_AND_COMPANY-MX202506026052

PATIENT
  Age: 36 Year
  Sex: Female

DRUGS (1)
  1. MOUNJARO [Suspect]
     Active Substance: TIRZEPATIDE
     Indication: Product used for unknown indication
     Route: 065
     Dates: start: 20250625

REACTIONS (5)
  - Pruritus [Unknown]
  - Vomiting [Unknown]
  - Abdominal pain [Unknown]
  - Pain [Recovered/Resolved]
  - Nausea [Recovered/Resolved]
